FAERS Safety Report 16239444 (Version 1)
Quarter: 2019Q2

REPORT INFORMATION
  Report Type: Spontaneous
  Country: CH (occurrence: CH)
  Receive Date: 20190425
  Receipt Date: 20190425
  Transmission Date: 20190711
  Serious: Yes (Other)
  Sender: FDA-Public Use
  Company Number: CH-MYLANLABS-2019M1037329

PATIENT
  Age: 75 Year
  Sex: Male

DRUGS (14)
  1. METHOTREXATE (METHOTREXATE SODIUM) [Suspect]
     Active Substance: METHOTREXATE SODIUM
     Indication: PRODUCT USED FOR UNKNOWN INDICATION
     Dosage: 15 MILLIGRAM
     Dates: end: 20190308
  2. PIPERACILLIN AND TAZOBACTAM [Suspect]
     Active Substance: PIPERACILLIN SODIUM\TAZOBACTAM SODIUM
     Indication: SEPSIS
     Dosage: 4.5 GRAM, 12 HOURS
     Route: 042
     Dates: start: 20190310, end: 20190313
  3. ROCEPHIN [Suspect]
     Active Substance: CEFTRIAXONE SODIUM
     Dosage: 1 DOSAGE FORM
     Dates: start: 20190313, end: 20190317
  4. PERFALGAN [Suspect]
     Active Substance: ACETAMINOPHEN
     Indication: ANALGESIC THERAPY
     Dosage: IN TOTAL
     Route: 042
     Dates: start: 20190310, end: 20190310
  5. NOVALGIN (METAMIZOLE SODIUM) [Suspect]
     Active Substance: METAMIZOLE SODIUM
     Indication: ANALGESIC THERAPY
     Dosage: IN TOTAL
     Route: 048
     Dates: start: 20190311, end: 20190311
  6. AMLODIPINE [Concomitant]
     Active Substance: AMLODIPINE BESYLATE
     Dosage: 5 MILLIGRAM, QD
     Route: 048
     Dates: start: 20190323
  7. DAFALGAN [Suspect]
     Active Substance: ACETAMINOPHEN
     Indication: ANALGESIC THERAPY
     Dosage: AS NECESSARY
     Route: 048
     Dates: start: 20190310, end: 20190313
  8. LANTUS [Concomitant]
     Active Substance: INSULIN GLARGINE
     Dosage: 1 DOSAGE FORM, QD
     Route: 058
     Dates: end: 20190310
  9. FORXIGA [Suspect]
     Active Substance: DAPAGLIFLOZIN
     Indication: TYPE 2 DIABETES MELLITUS
     Dosage: 1 DOSAGE FORM
     Route: 048
     Dates: end: 20190308
  10. ROCEPHIN [Suspect]
     Active Substance: CEFTRIAXONE SODIUM
     Indication: SEPSIS
     Dosage: 1 DOSAGE FORM
     Dates: start: 20190308, end: 20190310
  11. AMLODIPINE [Concomitant]
     Active Substance: AMLODIPINE BESYLATE
     Dosage: 5 MILLIGRAM, QD
     Route: 048
     Dates: end: 20190309
  12. ROSUVASTATIN MEPHA LACTAB [Concomitant]
     Active Substance: ROSUVASTATIN CALCIUM
     Dosage: 10 MILLIGRAM, QD
     Route: 048
     Dates: end: 20190309
  13. KLACID [Suspect]
     Active Substance: CLARITHROMYCIN
     Indication: SEPSIS
     Dosage: 250 MILLIGRAM, QD
     Dates: start: 20190309, end: 20190313
  14. LANTUS [Concomitant]
     Active Substance: INSULIN GLARGINE
     Dosage: 35 INTERNATIONAL UNIT
     Route: 058
     Dates: end: 20190309

REACTIONS (4)
  - Pancytopenia [Recovering/Resolving]
  - Acute generalised exanthematous pustulosis [Recovering/Resolving]
  - Agranulocytosis [Recovering/Resolving]
  - Acute kidney injury [Recovering/Resolving]

NARRATIVE: CASE EVENT DATE: 20190308
